FAERS Safety Report 5110890-5 (Version None)
Quarter: 2006Q3

REPORT INFORMATION
  Report Type: 
  Country: None (occurrence: None)
  Receive Date: 20060919
  Receipt Date: 20060905
  Transmission Date: 20061208
  Serious: Yes (Hospitalization)
  Sender: FDA-Public Use
  Company Number: SPV1-2006-00797

PATIENT
  Age: 31 Year
  Sex: Female

DRUGS (1)
  1. PENTASA [Suspect]
     Indication: COLITIS ULCERATIVE
     Dosage: 2250 MG, DAILY, ORAL
     Route: 048
     Dates: start: 20050909, end: 20050930

REACTIONS (3)
  - PERICARDITIS [None]
  - PHARYNGOLARYNGEAL PAIN [None]
  - PLEURISY [None]
